FAERS Safety Report 16001309 (Version 1)
Quarter: 2019Q1

REPORT INFORMATION
  Report Type: Spontaneous
  Country: US (occurrence: US)
  Receive Date: 20190224
  Receipt Date: 20190224
  Transmission Date: 20190418
  Serious: Yes (Other)
  Sender: FDA-Public Use
  Company Number: None

PATIENT
  Age: 60 Year
  Sex: Female

DRUGS (5)
  1. LIDOCAINE. [Suspect]
     Active Substance: LIDOCAINE
     Indication: KELOID SCAR
     Route: 058
     Dates: start: 20180319, end: 20180319
  2. KENALOG [Suspect]
     Active Substance: TRIAMCINOLONE ACETONIDE
     Indication: KELOID SCAR
     Route: 058
     Dates: start: 20180319, end: 20180320
  3. TRAMADOL. [Concomitant]
     Active Substance: TRAMADOL
  4. VITAMIN D2 [Concomitant]
     Active Substance: ERGOCALCIFEROL
  5. LISINOPRIL. [Concomitant]
     Active Substance: LISINOPRIL

REACTIONS (3)
  - Burns third degree [None]
  - Scar [None]
  - Breast pain [None]

NARRATIVE: CASE EVENT DATE: 20180319
